FAERS Safety Report 25208801 (Version 2)
Quarter: 2025Q3

REPORT INFORMATION
  Report Type: Spontaneous
  Country: JP (occurrence: JP)
  Receive Date: 20250417
  Receipt Date: 20250710
  Transmission Date: 20251020
  Serious: Yes (Other)
  Sender: BRISTOL-MYERS SQUIBB COMPANY
  Company Number: JP-ONO-2025JP006281

PATIENT
  Sex: Male

DRUGS (1)
  1. OPDIVO [Suspect]
     Active Substance: NIVOLUMAB
     Indication: Malignant neoplasm of unknown primary site
     Dosage: UNK, Q2W
     Route: 041

REACTIONS (5)
  - Internal haemorrhage [Unknown]
  - Skin discolouration [Unknown]
  - Illness [Unknown]
  - Pruritus [Unknown]
  - Skin disorder [Unknown]
